FAERS Safety Report 8635549 (Version 2)
Quarter: 2013Q3

REPORT INFORMATION
  Report Type: Spontaneous
  Country: BW (occurrence: BW)
  Receive Date: 20120626
  Receipt Date: 20130718
  Transmission Date: 20140515
  Serious: Yes (Other)
  Sender: FDA-Public Use
  Company Number: BW-GLAXOSMITHKLINE-B0809230A

PATIENT
  Age: 42 Year
  Sex: Male
  Weight: 200 kg

DRUGS (4)
  1. AVAMYS [Suspect]
     Indication: RHINITIS ALLERGIC
     Route: 065
     Dates: start: 20120315, end: 20120615
  2. MALANIL [Concomitant]
     Indication: MALARIA PROPHYLAXIS
     Dosage: 250MG PER DAY
     Route: 065
     Dates: start: 201105
  3. FEXOFENADINE [Concomitant]
     Indication: RHINITIS ALLERGIC
     Dosage: 180MG PER DAY
     Route: 065
  4. NASONEX [Concomitant]

REACTIONS (2)
  - Vision blurred [Recovered/Resolved]
  - Dizziness [Recovered/Resolved]
